FAERS Safety Report 4855691-8 (Version None)
Quarter: 2005Q4

REPORT INFORMATION
  Report Type: 
  Country: None (occurrence: None)
  Receive Date: 20051214
  Receipt Date: 20051129
  Transmission Date: 20060501
  Serious: Yes (Hospitalization, Disabling)
  Sender: FDA-Public Use
  Company Number: JP_050406448

PATIENT
  Age: 75 Year
  Sex: Male
  Weight: 63.5 kg

DRUGS (7)
  1. GEMZAR [Suspect]
     Indication: BILE DUCT CANCER STAGE IV
     Dosage: 1600 MG, OTHER, INTRAVENOUS
     Route: 042
     Dates: start: 20050316, end: 20050412
  2. GEMZAR [Suspect]
     Indication: BILE DUCT CANCER STAGE IV
     Dosage: 1600 MG, OTHER, INTRAVENOUS
     Route: 042
     Dates: start: 20050510, end: 20050809
  3. BERIZYM GRANULE [Concomitant]
  4. SELBEX (TEPRENONE) [Concomitant]
  5. FAMOTIDINE [Concomitant]
  6. GASMOTIN (MOSAPRIDE CITRATE) [Concomitant]
  7. LAXOBERON (SODIUM PICOSULFATE) [Concomitant]

REACTIONS (14)
  - ANOREXIA [None]
  - DIARRHOEA [None]
  - DIFFICULTY IN WALKING [None]
  - FALL [None]
  - GAIT DISTURBANCE [None]
  - GENERAL PHYSICAL HEALTH DETERIORATION [None]
  - ORAL INTAKE REDUCED [None]
  - PERIPHERAL MOTOR NEUROPATHY [None]
  - PERIPHERAL SENSORY NEUROPATHY [None]
  - PYREXIA [None]
  - STOMATITIS [None]
  - TONGUE COATED [None]
  - TONGUE ULCERATION [None]
  - WHITE BLOOD CELL COUNT DECREASED [None]
